FAERS Safety Report 6302113-6 (Version None)
Quarter: 2009Q3

REPORT INFORMATION
  Report Type: 
  Country: None (occurrence: None)
  Receive Date: 20090807
  Receipt Date: 20090730
  Transmission Date: 20100115
  Serious: Yes (Life-Threatening, Other)
  Sender: FDA-Public Use
  Company Number: CR-ABBOTT-09P-069-0588543-00

PATIENT
  Sex: Female

DRUGS (3)
  1. EPIVAL TABLETS [Suspect]
     Indication: BIPOLAR I DISORDER
     Route: 048
     Dates: start: 20090618, end: 20090724
  2. RISPERDAL [Suspect]
     Indication: BIPOLAR I DISORDER
     Route: 048
     Dates: start: 20090618, end: 20090724
  3. CYMBALTA [Concomitant]
     Indication: BIPOLAR I DISORDER
     Route: 048
     Dates: start: 20090618, end: 20090724

REACTIONS (3)
  - HEPATITIS [None]
  - JAUNDICE [None]
  - PRURITUS GENERALISED [None]
